FAERS Safety Report 6546219-5 (Version None)
Quarter: 2010Q1

REPORT INFORMATION
  Report Type: 
  Country: None (occurrence: None)
  Receive Date: 20100122
  Receipt Date: 20100112
  Transmission Date: 20100710
  Serious: Yes (Death)
  Sender: FDA-Public Use
  Company Number: US-SOLVAY-00210000159

PATIENT
  Sex: Male

DRUGS (3)
  1. ZOCOR [Concomitant]
     Indication: HYPERLIPIDAEMIA
     Dosage: DAILY DOSE:  UNKNOWN
     Route: 048
  2. ANDROGEL [Suspect]
     Indication: ERECTILE DYSFUNCTION
     Dosage: DAILY DOSE:  UNKNOWN
     Route: 062
  3. UNKNOWN DIABETIC MEDS [Concomitant]
     Indication: DIABETES MELLITUS
     Dosage: DAILY DOSE:  UNKNOWN
     Route: 048

REACTIONS (1)
  - MYOCARDIAL INFARCTION [None]
